FAERS Safety Report 7481207-6 (Version None)
Quarter: 2011Q2

REPORT INFORMATION
  Report Type: 
  Country: None (occurrence: None)
  Receive Date: 20110516
  Receipt Date: 20110502
  Transmission Date: 20111010
  Serious: Yes (Hospitalization, Other)
  Sender: FDA-Public Use
  Company Number: US-ELI_LILLY_AND_COMPANY-US201008005104

PATIENT
  Sex: Male

DRUGS (9)
  1. SOMA [Concomitant]
     Dosage: UNK, UNKNOWN
     Route: 065
  2. HYDROCODONE BITARTRATE [Concomitant]
     Dosage: UNK, UNKNOWN
     Route: 065
  3. METHADONE HCL [Concomitant]
     Dosage: UNK, UNKNOWN
     Route: 065
  4. FORTEO [Suspect]
     Indication: OSTEOPOROSIS
     Dosage: 20 UG, DAILY (1/D)
     Dates: start: 20100622
  5. FORTEO [Suspect]
     Dosage: 20 UG, QD
     Route: 065
  6. FORTEO [Suspect]
     Dosage: 20 UG, QD
  7. LORTAB [Concomitant]
  8. TRAZODONE HCL [Concomitant]
     Dosage: UNK, UNKNOWN
     Route: 065
  9. DOXEPIN [Concomitant]
     Dosage: UNK, UNKNOWN
     Route: 065

REACTIONS (8)
  - CHOLELITHOTOMY [None]
  - GALLBLADDER OPERATION [None]
  - FEELING HOT [None]
  - PANCREATITIS [None]
  - HEPATITIS [None]
  - GALLSTONE ILEUS [None]
  - PAIN IN EXTREMITY [None]
  - PIGMENTATION DISORDER [None]
